FAERS Safety Report 5163217-7 (Version None)
Quarter: 2006Q4

REPORT INFORMATION
  Report Type: 
  Country: None (occurrence: None)
  Receive Date: 20061204
  Receipt Date: 20061121
  Transmission Date: 20070319
  Serious: Yes (Other)
  Sender: FDA-Public Use
  Company Number: PHHO2006GB19778

PATIENT
  Age: 22 Year
  Sex: Female

DRUGS (2)
  1. DINOPROSTONE [Suspect]
     Indication: INDUCED LABOUR
     Dosage: 3 MG, QD
     Dates: start: 20060929, end: 20060929
  2. SYNTOCINON [Suspect]
     Indication: INDUCED LABOUR
     Dosage: 10 IU INFUSION
     Route: 042
     Dates: start: 20060930, end: 20061001

REACTIONS (2)
  - DRUG EXPOSURE DURING PREGNANCY [None]
  - VENTOUSE EXTRACTION [None]
